FAERS Safety Report 8799538 (Version 1)
Quarter: 2012Q4

REPORT INFORMATION
  Report Type: 
  Country: US (occurrence: US)
  Receive Date: 20120919
  Receipt Date: 20120919
  Transmission Date: 20130627
  Serious: No
  Sender: FDA-Public Use
  Company Number: US-PFIZER INC-2012228460

PATIENT
  Age: 69 Year
  Sex: Male
  Weight: 86.17 kg

DRUGS (5)
  1. VIAGRA [Suspect]
     Indication: ERECTILE DYSFUNCTION
     Dosage: 100 mg, as needed
     Route: 048
     Dates: start: 201207
  2. GABAPENTIN [Interacting]
     Indication: NECK PAIN
     Dosage: 300 mg, 3x/day
     Route: 048
     Dates: start: 201208
  3. ATORVASTATIN [Concomitant]
     Indication: BLOOD CHOLESTEROL INCREASED
     Dosage: 80 mg, UNK
  4. BABY ASPIRIN [Concomitant]
     Indication: BLOOD CHOLESTEROL INCREASED
     Dosage: UNK
  5. LISINOPRIL [Concomitant]
     Indication: HEART RATE INCREASED
     Dosage: 10 mg, UNK

REACTIONS (2)
  - Drug interaction [Unknown]
  - Drug ineffective [Unknown]
